FAERS Safety Report 11337501 (Version 1)
Quarter: 2015Q3

REPORT INFORMATION
  Report Type: Spontaneous
  Country: US (occurrence: US)
  Receive Date: 20150803
  Receipt Date: 20150803
  Transmission Date: 20151125
  Serious: No
  Sender: FDA-Public Use
  Company Number: US-ELI_LILLY_AND_COMPANY-US200907001843

PATIENT
  Sex: Female

DRUGS (3)
  1. CATAPRES /00171101/ [Concomitant]
     Active Substance: CLONIDINE
     Dosage: 0.1 MG, 2/D
  2. ZYPREXA [Suspect]
     Active Substance: OLANZAPINE
     Dosage: 20 MG/KG, EACH EVENING
     Dates: start: 2003
  3. CELEXA [Concomitant]
     Active Substance: CITALOPRAM HYDROBROMIDE
     Dosage: 20 MG, DAILY (1/D)

REACTIONS (1)
  - Injury [Recovering/Resolving]
